FAERS Safety Report 12690177 (Version 2)
Quarter: 2016Q4

REPORT INFORMATION
  Report Type: Spontaneous
  Country: US (occurrence: US)
  Receive Date: 20160826
  Receipt Date: 20161215
  Transmission Date: 20170207
  Serious: Yes (Other)
  Sender: FDA-Public Use
  Company Number: US-BAYER-2016-163590

PATIENT
  Sex: Female

DRUGS (8)
  1. CIPRO [Suspect]
     Active Substance: CIPROFLOXACIN HYDROCHLORIDE
     Indication: INFECTION
     Dosage: 500 MG, UNK
     Dates: start: 20030505, end: 20030511
  2. AMITRIPTYLINE [Concomitant]
     Active Substance: AMITRIPTYLINE
     Indication: FIBROMYALGIA
     Dosage: 10 MG, UNK
  3. CYMBALTA [Concomitant]
     Active Substance: DULOXETINE HYDROCHLORIDE
     Indication: DEPRESSION
     Dosage: DAILY 60 MG
  4. MIDODRINE [Concomitant]
     Active Substance: MIDODRINE
     Indication: BLOOD PRESSURE MEASUREMENT
     Dosage: DAILY 5 MG
  5. OXYBUTIN [Concomitant]
     Active Substance: OXYBUTYNIN
     Indication: HYPERHIDROSIS
     Dosage: DAILY 5 MG
  6. LEVAQUIN [Suspect]
     Active Substance: LEVOFLOXACIN
     Indication: INFECTION
     Dosage: 500 UNK, UNK
     Dates: start: 20060401, end: 20060411
  7. FOSAMAX [Concomitant]
     Active Substance: ALENDRONATE SODIUM
     Indication: OSTEOPOROSIS
     Dosage: DAILY 70MG
  8. NEURITON [Concomitant]
     Indication: PAIN
     Dosage: 100 MG, TID

REACTIONS (3)
  - Pain [None]
  - Neuropathy peripheral [Not Recovered/Not Resolved]
  - Physical disability [None]

NARRATIVE: CASE EVENT DATE: 2006
